FAERS Safety Report 17121313 (Version 1)
Quarter: 2019Q4

REPORT INFORMATION
  Report Type: Spontaneous
  Country: US (occurrence: US)
  Receive Date: 20191206
  Receipt Date: 20191206
  Transmission Date: 20200122
  Serious: No
  Sender: FDA-Public Use
  Company Number: US-MYLANLABS-2019M1115793

PATIENT
  Sex: Female

DRUGS (2)
  1. PEPCID                             /00305201/ [Concomitant]
     Active Substance: ALUMINUM HYDROXIDE\MAGNESIUM CARBONATE
  2. ESTRADIOL AND NORETHINDRONE ACETATE TABLETS USP [Suspect]
     Active Substance: ESTRADIOL\NORETHINDRONE ACETATE
     Indication: HORMONE REPLACEMENT THERAPY
     Dosage: ONE TABLET A DAY
     Route: 048
     Dates: start: 201901

REACTIONS (5)
  - Vulvovaginal dryness [Recovered/Resolved]
  - Abdominal distension [Recovered/Resolved]
  - Breast enlargement [Recovered/Resolved]
  - Therapeutic product effect increased [Recovered/Resolved]
  - Breast pain [Recovered/Resolved]

NARRATIVE: CASE EVENT DATE: 2019
